FAERS Safety Report 5321299-3 (Version None)
Quarter: 2007Q2

REPORT INFORMATION
  Report Type: 
  Country: None (occurrence: None)
  Receive Date: 20070507
  Receipt Date: 20070507
  Transmission Date: 20071010
  Serious: Yes (Disabling, Other)
  Sender: FDA-Public Use
  Company Number: None

PATIENT
  Age: 22 Year
  Sex: Male
  Weight: 52.1637 kg

DRUGS (2)
  1. REGLAN [Suspect]
     Indication: NAUSEA
     Dosage: ?      ?     OTHER
     Route: 050
     Dates: start: 20070504, end: 20070504
  2. PROAIR HFA [Suspect]
     Indication: DYSPNOEA
     Dosage: 108 MCG    2 PUFFS EVERY 4 HRS   INHAL
     Route: 055
     Dates: start: 20070504, end: 20070504

REACTIONS (11)
  - ADVERSE DRUG REACTION [None]
  - BLOOD PRESSURE DIASTOLIC DECREASED [None]
  - DYSPNOEA [None]
  - FEAR OF DEATH [None]
  - HEART RATE INCREASED [None]
  - MUSCLE SPASMS [None]
  - MUSCULOSKELETAL STIFFNESS [None]
  - OBSTRUCTIVE AIRWAYS DISORDER [None]
  - ORTHOPNOEA [None]
  - PANIC ATTACK [None]
  - TREMOR [None]
